FAERS Safety Report 21400307 (Version 1)
Quarter: 2022Q3

REPORT INFORMATION
  Report Type: Spontaneous
  Country: US (occurrence: None)
  Receive Date: 20220930
  Receipt Date: 20220930
  Transmission Date: 20221027
  Serious: Yes (Hospitalization)
  Sender: FDA-Public Use
  Company Number: None

PATIENT
  Sex: Male
  Weight: 102.7 kg

DRUGS (2)
  1. GEMCITABINE HYDROCHLORIDE [Suspect]
     Active Substance: GEMCITABINE HYDROCHLORIDE
  2. PACLITAXEL [Concomitant]
     Active Substance: PACLITAXEL

REACTIONS (7)
  - Pyrexia [None]
  - Asthenia [None]
  - Nausea [None]
  - Vomiting [None]
  - Hypotension [None]
  - Tachycardia [None]
  - Haemoglobin decreased [None]

NARRATIVE: CASE EVENT DATE: 20220920
